FAERS Safety Report 9032389 (Version 1)
Quarter: 2013Q1

REPORT INFORMATION
  Report Type: Spontaneous
  Country: DK (occurrence: None)
  Receive Date: 20130108
  Receipt Date: 20130108
  Transmission Date: 20140127
  Serious: Yes (Hospitalization, Other)
  Sender: FDA-Public Use
  Company Number: ADR-2013-00013

PATIENT
  Age: 62 Year
  Sex: Female

DRUGS (4)
  1. LIORESAL [Suspect]
     Indication: MULTIPLE SCLEROSIS
     Dosage: 12.5-25 MG
  2. IMIPRAMINE [Concomitant]
  3. CITALOPRAM [Concomitant]
  4. ANTIBIOTICS [Concomitant]

REACTIONS (20)
  - Dehydration [None]
  - Constipation [None]
  - Urinary tract infection [None]
  - Decreased appetite [None]
  - Nausea [None]
  - Hypotension [None]
  - Dizziness [None]
  - Diplopia [None]
  - Dyspnoea [None]
  - Mood altered [None]
  - Decubitus ulcer [None]
  - Depression [None]
  - Respiratory arrest [None]
  - Hallucination [None]
  - Self-medication [None]
  - Incorrect dose administered [None]
  - Delirium [None]
  - Confusional state [None]
  - Infection [None]
  - Weight decreased [None]
